FAERS Safety Report 10182955 (Version 1)
Quarter: 2014Q2

REPORT INFORMATION
  Report Type: Spontaneous
  Country: US (occurrence: US)
  Receive Date: 20140520
  Receipt Date: 20140520
  Transmission Date: 20141212
  Serious: No
  Sender: FDA-Public Use
  Company Number: US-ROXANE LABORATORIES, INC.-2014-RO-00769RO

PATIENT
  Age: 44 Year
  Sex: Male
  Weight: 98 kg

DRUGS (1)
  1. DEXAMETHASONE [Suspect]
     Indication: BRAIN NEOPLASM
     Route: 065
     Dates: start: 201402, end: 20140430

REACTIONS (1)
  - Weight increased [Unknown]
